FAERS Safety Report 14992404 (Version 1)
Quarter: 2018Q2

REPORT INFORMATION
  Report Type: Spontaneous
  Country: DE (occurrence: DE)
  Receive Date: 20180609
  Receipt Date: 20180609
  Transmission Date: 20180711
  Serious: Yes (Hospitalization)
  Sender: FDA-Public Use
  Company Number: DE-TEVA-2018-DE-903367

PATIENT
  Age: 81 Year
  Sex: Male

DRUGS (12)
  1. MOLSIDOMIN [Suspect]
     Active Substance: MOLSIDOMINE
     Dosage: 8 MG, 0-0-1-0
  2. AMLODIPIN [Suspect]
     Active Substance: AMLODIPINE BESYLATE
     Dosage: 5 MG, 0-0-1-0
  3. INSUMAN BASAL [Concomitant]
     Active Substance: INSULIN HUMAN
     Dosage: NEED
  4. XIPAMID [Suspect]
     Active Substance: XIPAMIDE
     Dosage: 10 MG, 0-1-0-0
  5. INSUMAN RAPID [Concomitant]
     Active Substance: INSULIN HUMAN
     Dosage: NEED
  6. TAMSULOSIN [Concomitant]
     Active Substance: TAMSULOSIN
     Dosage: 0.4 MG, 1-0-0-0
  7. ISOSORBIDDINITRAT [Suspect]
     Active Substance: ISOSORBIDE DINITRATE
     Dosage: 60 MG, 0-1-0-0
  8. TORASEMID [Suspect]
     Active Substance: TORSEMIDE
     Dosage: 10 MG, 2-0-0-0
  9. METOPROLOL. [Suspect]
     Active Substance: METOPROLOL
     Dosage: 47.5 MG, 1-0-1-0
  10. PHENPROCOUMON [Concomitant]
     Active Substance: PHENPROCOUMON
     Dosage: ACCORDING TO INR
  11. SIMVASTATIN. [Concomitant]
     Active Substance: SIMVASTATIN
     Dosage: 20 MG, 0-0-0-1
  12. DOXAZOSIN [Suspect]
     Active Substance: DOXAZOSIN\DOXAZOSIN MESYLATE
     Dosage: 2 MG, 1-0-1-0

REACTIONS (2)
  - Dyspnoea [Unknown]
  - Syncope [Unknown]
